FAERS Safety Report 9524622 (Version 1)
Quarter: 2013Q3

REPORT INFORMATION
  Report Type: Spontaneous
  Country: GB (occurrence: None)
  Receive Date: 20130912
  Receipt Date: 20130912
  Transmission Date: 20140515
  Serious: Yes (Life-Threatening, Hospitalization, Other)
  Sender: FDA-Public Use
  Company Number: AUR-APL-2013-07499

PATIENT
  Sex: Female

DRUGS (6)
  1. AMOXICILLIN + CLAVULANIC ACID [Suspect]
     Indication: PRODUCT USED FOR UNKNOWN INDICATION
     Dosage: 3 DOSAGE FORMS,  (1 DOSAGE FORMS, 3 IN 1 D), ORAL
     Route: 048
     Dates: start: 20120320, end: 20120327
  2. METRONIDAZOLE (METRONIDAZOLE) [Suspect]
     Indication: CLOSTRIDIUM DIFFICILE INFECTION
     Dosage: 1200 MG (400 MG, 3 IN 1 D), ORAL
     Route: 048
     Dates: start: 20120415, end: 20120425
  3. TRIMETHOPRIM (TRIMETHOPRIM) [Suspect]
     Indication: PRODUCT USED FOR UNKNOWN INDICATION
     Dosage: 400 MG  (2000 MG, 2 IN 1 D), ORAL
     Route: 048
     Dates: start: 20120515, end: 20120517
  4. FOSFOMYCIN [Suspect]
     Indication: URINARY TRACT INFECTION
     Dosage: 3 GM (1 GM, 3 IN 1 D), ORAL
     Route: 048
     Dates: start: 20120419
  5. BETAHISTINE (BETAHISTINE) [Concomitant]
  6. CALCICHEW D3 (LEKOVIT CA) [Concomitant]

REACTIONS (3)
  - International normalised ratio increased [None]
  - Transient ischaemic attack [None]
  - Drug resistance [None]
